FAERS Safety Report 13768222 (Version 3)
Quarter: 2017Q3

REPORT INFORMATION
  Report Type: Report from Study
  Country: US (occurrence: US)
  Receive Date: 20170719
  Receipt Date: 20170816
  Transmission Date: 20171127
  Serious: No
  Sender: FDA-Public Use
  Company Number: PHEH2017US022146

PATIENT
  Sex: Female
  Weight: 88.44 kg

DRUGS (1)
  1. GILENYA [Suspect]
     Active Substance: FINGOLIMOD HYDROCHLORIDE
     Indication: MULTIPLE SCLEROSIS
     Dosage: 0.5 MG, QD
     Route: 048
     Dates: end: 20170713

REACTIONS (5)
  - Nervousness [Unknown]
  - Headache [Not Recovered/Not Resolved]
  - Bone pain [Unknown]
  - Diarrhoea [Unknown]
  - Swelling face [Unknown]
